FAERS Safety Report 8067690-6 (Version None)
Quarter: 2012Q1

REPORT INFORMATION
  Report Type: 
  Country: None (occurrence: None)
  Receive Date: 20120124
  Receipt Date: 20120113
  Transmission Date: 20120608
  Serious: Yes (Hospitalization)
  Sender: FDA-Public Use
  Company Number: FR-BAXTER-2010BH026664

PATIENT
  Age: 84 Year
  Sex: Female
  Weight: 70 kg

DRUGS (4)
  1. FEIBA [Suspect]
     Route: 065
     Dates: start: 20090718
  2. FEIBA [Suspect]
     Indication: FACTOR VIII INHIBITION
     Route: 065
  3. FEIBA [Suspect]
     Route: 065
     Dates: start: 20090718
  4. FEIBA [Suspect]
     Indication: ACQUIRED HAEMOPHILIA
     Route: 065

REACTIONS (2)
  - FALL [None]
  - LOSS OF CONSCIOUSNESS [None]
